FAERS Safety Report 7029525-X (Version None)
Quarter: 2010Q4

REPORT INFORMATION
  Report Type: 
  Country: None (occurrence: None)
  Receive Date: 20101005
  Receipt Date: 20100927
  Transmission Date: 20110411
  Serious: Yes (Other)
  Sender: FDA-Public Use
  Company Number: US-GENENTECH-270361

PATIENT
  Sex: Female

DRUGS (23)
  1. XOLAIR [Suspect]
     Indication: ASTHMA
     Dosage: 375 MG, Q2W
     Dates: end: 20081029
  2. TRAMADOL HCL [Concomitant]
     Indication: ASTHMA
  3. ALBUTEROL [Concomitant]
     Indication: ASTHMA
  4. ATROVENT [Concomitant]
     Indication: ASTHMA
  5. ALLEGRA [Concomitant]
     Indication: HYPERSENSITIVITY
  6. FLONASE [Concomitant]
     Indication: HYPERSENSITIVITY
  7. ZEGERID [Concomitant]
     Indication: GASTROOESOPHAGEAL REFLUX DISEASE
  8. COMBIVENT [Concomitant]
     Indication: ASTHMA
  9. ADVAIR DISKUS 100/50 [Concomitant]
     Indication: ASTHMA
     Dosage: UNK
  10. SPIRIVA [Concomitant]
     Indication: ASTHMA
     Dosage: UNK
  11. ZANAFLEX [Concomitant]
     Indication: BACK PAIN
  12. LEVAQUIN [Concomitant]
     Indication: BRONCHITIS
  13. VITAMIN D [Concomitant]
     Indication: VITAMIN D DEFICIENCY
  14. MULTI-VITAMIN [Concomitant]
     Indication: PRODUCT USED FOR UNKNOWN INDICATION
  15. SYNTHROID [Concomitant]
     Indication: HYPOTHYROIDISM
  16. VICODIN [Concomitant]
     Indication: ARTHRALGIA
  17. PRENATAL VITAMINS [Concomitant]
     Indication: PRODUCT USED FOR UNKNOWN INDICATION
  18. OMEPRAZOLE [Concomitant]
     Indication: ULCER
  19. FLEXERIL [Concomitant]
     Indication: BACK PAIN
  20. PREDNISONE [Concomitant]
     Indication: BRONCHITIS
  21. TUMS [Concomitant]
     Indication: DYSPEPSIA
  22. ZANTAC [Concomitant]
     Indication: PRURITUS
  23. EPIPEN [Concomitant]
     Indication: ANAPHYLACTIC REACTION

REACTIONS (1)
  - FIBROMYALGIA [None]
